FAERS Safety Report 9862889 (Version 2)
Quarter: 2014Q1

REPORT INFORMATION
  Report Type: Report from Study
  Country: US (occurrence: US)
  Receive Date: 20140203
  Receipt Date: 20140203
  Transmission Date: 20141002
  Serious: Yes (Other)
  Sender: FDA-Public Use
  Company Number: PHEH2014US001027

PATIENT
  Age: 56 Year
  Sex: Female

DRUGS (19)
  1. NEORAL [Suspect]
     Indication: IMMUNOSUPPRESSION
     Dosage: 75 MG IN THE MORNING AND 25 MG AT NIGHT
     Route: 048
  2. NEORAL [Suspect]
     Indication: LIVER TRANSPLANT
  3. URSODIOL [Concomitant]
     Dosage: 250 MG, TID
  4. FOLIC ACID [Concomitant]
  5. METOPROLOL [Concomitant]
     Dosage: 50 MG, QD
  6. BIOTIN [Concomitant]
  7. NIACIN [Concomitant]
  8. ZINC [Concomitant]
  9. OS-CAL D [Concomitant]
  10. CALCITRIOL [Concomitant]
  11. VITAMIN D [Concomitant]
  12. PREVACID [Concomitant]
     Dosage: 30 MG, PRN
  13. TOPROL [Concomitant]
     Dosage: 25 U, AT BEDTIME
  14. FOLATE [Concomitant]
     Dosage: 1 MG, WEEKLY
     Route: 061
  15. BIOTENE [Concomitant]
  16. VITAMIN C [Concomitant]
  17. GARLIC [Concomitant]
  18. VITAMIN E [Concomitant]
  19. ECONAZOLE [Concomitant]

REACTIONS (30)
  - Mitral valve incompetence [Unknown]
  - Dyspnoea exertional [Not Recovered/Not Resolved]
  - Palpitations [Unknown]
  - Road traffic accident [Unknown]
  - Rib fracture [Recovering/Resolving]
  - Chest pain [Unknown]
  - Glaucoma [Unknown]
  - Immunosuppressant drug level decreased [Unknown]
  - Liver transplant rejection [Unknown]
  - Cytomegalovirus infection [Unknown]
  - Dry eye [Unknown]
  - Hepatic enzyme increased [Unknown]
  - Blood alkaline phosphatase increased [Unknown]
  - Somatisation disorder [Unknown]
  - Gastrooesophageal reflux disease [Unknown]
  - Vitamin D deficiency [Unknown]
  - Pulmonary mass [Recovered/Resolved]
  - Arthralgia [Unknown]
  - Anxiety [Unknown]
  - Dental caries [Unknown]
  - Hyperlipidaemia [Unknown]
  - Hypertension [Unknown]
  - Oral herpes [Unknown]
  - Cough [Recovered/Resolved]
  - Paraesthesia [Unknown]
  - Diarrhoea [Recovered/Resolved]
  - Upper respiratory tract infection [Unknown]
  - Musculoskeletal pain [Recovering/Resolving]
  - Fatigue [Unknown]
  - Bronchitis [Unknown]
